FAERS Safety Report 24199204 (Version 3)
Quarter: 2025Q2

REPORT INFORMATION
  Report Type: Spontaneous
  Country: US (occurrence: US)
  Receive Date: 20240812
  Receipt Date: 20250605
  Transmission Date: 20250717
  Serious: Yes (Hospitalization, Other)
  Sender: SANOFI AVENTIS
  Company Number: US-SA-SAC20240808000581

PATIENT
  Age: 44 Year
  Sex: Male
  Weight: 89.35 kg

DRUGS (35)
  1. REZUROCK [Suspect]
     Active Substance: BELUMOSUDIL
     Indication: Chronic myeloid leukaemia (in remission)
     Dosage: 200 MG, BID
     Route: 048
  2. REZUROCK [Suspect]
     Active Substance: BELUMOSUDIL
     Dosage: 1 DF, QD
     Route: 048
  3. ASPIRIN [Concomitant]
     Active Substance: ASPIRIN
  4. CLONAZEPAM [Concomitant]
     Active Substance: CLONAZEPAM
  5. LORAZEPAM [Concomitant]
     Active Substance: LORAZEPAM
  6. ZOLOFT [Concomitant]
     Active Substance: SERTRALINE HYDROCHLORIDE
  7. CLOPIDOGREL [Concomitant]
     Active Substance: CLOPIDOGREL BISULFATE
  8. ACYCLOVIR [Concomitant]
     Active Substance: ACYCLOVIR
  9. URSODIOL [Concomitant]
     Active Substance: URSODIOL
  10. DICYCLOMINE [Concomitant]
     Active Substance: DICYCLOMINE HYDROCHLORIDE
  11. TYLENOL [Concomitant]
     Active Substance: ACETAMINOPHEN
  12. NORTRIPTYLINE [Concomitant]
     Active Substance: NORTRIPTYLINE
  13. CARVEDILOL [Concomitant]
     Active Substance: CARVEDILOL
  14. LYRICA [Concomitant]
     Active Substance: PREGABALIN
  15. PREDNISONE [Concomitant]
     Active Substance: PREDNISONE
  16. ERGOCALCIFEROL [Concomitant]
     Active Substance: ERGOCALCIFEROL
  17. BUDESONIDE [Concomitant]
     Active Substance: BUDESONIDE
  18. AMOXICILLIN [Concomitant]
     Active Substance: AMOXICILLIN
  19. ONDANSETRON [Concomitant]
     Active Substance: ONDANSETRON
  20. LOSARTAN [Concomitant]
     Active Substance: LOSARTAN
  21. FIORICET [Concomitant]
     Active Substance: ACETAMINOPHEN\BUTALBITAL\CAFFEINE
  22. ROSUVASTATIN [Concomitant]
     Active Substance: ROSUVASTATIN
  23. PANTOPRAZOLE [Concomitant]
     Active Substance: PANTOPRAZOLE
  24. TESTOSTERONE CYPIONATE [Concomitant]
     Active Substance: TESTOSTERONE CYPIONATE
  25. CHOLESTYRAMINE [Concomitant]
     Active Substance: CHOLESTYRAMINE
  26. EXCEDRIN MIGRAINE [Concomitant]
     Active Substance: ACETAMINOPHEN\ASPIRIN\CAFFEINE
  27. VICKS DAYQUIL [PARACETAMOL;PSEUDOEPHEDRINE HYDROCHLORIDE] [Concomitant]
  28. ACETAMINOPHEN\HYDROCODONE [Concomitant]
     Active Substance: ACETAMINOPHEN\HYDROCODONE
  29. GABAPENTIN [Concomitant]
     Active Substance: GABAPENTIN
  30. NITROSTAT [Concomitant]
     Active Substance: NITROGLYCERIN
  31. CYMBALTA [Concomitant]
     Active Substance: DULOXETINE HYDROCHLORIDE
  32. AMITRIPTYLINE [Concomitant]
     Active Substance: AMITRIPTYLINE
  33. RESTASIS [Concomitant]
     Active Substance: CYCLOSPORINE
  34. LITHIUM CARBONATE [Concomitant]
     Active Substance: LITHIUM CARBONATE
  35. ALPRAZOLAM [Concomitant]
     Active Substance: ALPRAZOLAM

REACTIONS (3)
  - Oesophageal ulcer [Unknown]
  - Product use in unapproved indication [Unknown]
  - Inappropriate schedule of product administration [Unknown]
